FAERS Safety Report 5344981-0 (Version None)
Quarter: 2007Q2

REPORT INFORMATION
  Report Type: 
  Country: None (occurrence: None)
  Receive Date: 20070416
  Receipt Date: 20061220
  Transmission Date: 20071010
  Serious: No
  Sender: FDA-Public Use
  Company Number: 2006SP004441

PATIENT
  Age: 80 Year
  Sex: Male

DRUGS (5)
  1. LUNESTA [Suspect]
     Indication: INSOMNIA
     Dosage: 0.5 MG;1X;ORAL
     Route: 048
     Dates: start: 20061201, end: 20061201
  2. METFORMIN HCL [Concomitant]
  3. ATORVASTATIN [Concomitant]
  4. TAMSULOSIN HCL [Concomitant]
  5. AVODART [Concomitant]

REACTIONS (1)
  - DYSGEUSIA [None]
